FAERS Safety Report 5805179-2 (Version None)
Quarter: 2008Q3

REPORT INFORMATION
  Report Type: 
  Country: None (occurrence: None)
  Receive Date: 20080707
  Receipt Date: 20080624
  Transmission Date: 20090109
  Serious: Yes (Hospitalization, Other)
  Sender: FDA-Public Use
  Company Number: PHEH2008US05746

PATIENT
  Age: 42 Year
  Sex: Female
  Weight: 59 kg

DRUGS (12)
  1. DICLOFENAC SODIUM [Suspect]
     Indication: RHEUMATOID ARTHRITIS
  2. ENBREL [Suspect]
     Dates: start: 20080429, end: 20080502
  3. METHOTREXATE [Concomitant]
  4. TACROLIMUS [Concomitant]
  5. REBAMIPIDE (REBAMIPIDE) [Concomitant]
  6. ISONIAZID [Concomitant]
  7. FOLIC ACID [Concomitant]
  8. CELIPROLOL (CELIPROLOL) [Concomitant]
  9. HERBESSER ^DELTA^ (DILTIAZEM HYDROCHLORIDE) [Concomitant]
  10. ESTROGENS SOL/INJ [Concomitant]
  11. FAMOTIDINE [Concomitant]
  12. FAMOTIDINE [Concomitant]

REACTIONS (5)
  - ABDOMINAL PAIN UPPER [None]
  - DECREASED APPETITE [None]
  - HYPOAESTHESIA [None]
  - HYPOAESTHESIA ORAL [None]
  - MALAISE [None]
